FAERS Safety Report 5048777-9 (Version None)
Quarter: 2006Q3

REPORT INFORMATION
  Report Type: 
  Country: None (occurrence: None)
  Receive Date: 20060705
  Receipt Date: 20060619
  Transmission Date: 20061208
  Serious: Yes (Death, Hospitalization)
  Sender: FDA-Public Use
  Company Number: JP200604000017

PATIENT
  Age: 82 Year
  Sex: Female

DRUGS (7)
  1. RALOXIFENE HCL [Suspect]
     Indication: OSTEOPOROSIS POSTMENOPAUSAL
     Dosage: 60 MG, DAILY (1/D), ORAL
     Route: 048
     Dates: start: 20050704, end: 20051102
  2. ELCITONIN (ELCATONIN) [Concomitant]
  3. INDERAL LA [Concomitant]
  4. LOSARTAN POTASSIUM [Concomitant]
  5. LASIX [Concomitant]
  6. LACTEC (CALCIUM CHLORIDE ANHYDROUS, POTASSIUM CHLORIDE, SODIUM CHLORID [Concomitant]
  7. ZITHROMAX [Concomitant]

REACTIONS (2)
  - BRONCHITIS ACUTE [None]
  - RENAL FAILURE ACUTE [None]
